FAERS Safety Report 7279666-7 (Version None)
Quarter: 2011Q1

REPORT INFORMATION
  Report Type: 
  Country: None (occurrence: None)
  Receive Date: 20110208
  Receipt Date: 20110126
  Transmission Date: 20110831
  Serious: Yes (Death)
  Sender: FDA-Public Use
  Company Number: US-PFIZER INC-2011004597

PATIENT
  Age: 40 Year
  Sex: Male

DRUGS (5)
  1. CITALOPRAM [Suspect]
     Indication: SUICIDE ATTEMPT
     Route: 048
  2. TRAMADOL [Suspect]
     Indication: SUICIDE ATTEMPT
     Route: 048
  3. IBUPROFEN [Suspect]
     Indication: SUICIDE ATTEMPT
     Route: 048
  4. DIPHENHYDRAMINE [Suspect]
     Indication: SUICIDE ATTEMPT
     Route: 048
  5. TRICHLORMETHIAZIDE [Suspect]
     Indication: SUICIDE ATTEMPT
     Route: 048

REACTIONS (4)
  - CARDIAC ARREST [None]
  - TOXICITY TO VARIOUS AGENTS [None]
  - RESPIRATORY ARREST [None]
  - COMPLETED SUICIDE [None]
